FAERS Safety Report 14917381 (Version 1)
Quarter: 2018Q2

REPORT INFORMATION
  Report Type: Spontaneous
  Country: TR (occurrence: TR)
  Receive Date: 20180521
  Receipt Date: 20180521
  Transmission Date: 20180711
  Serious: Yes (Hospitalization)
  Sender: FDA-Public Use
  Company Number: TR-SUN PHARMACEUTICAL INDUSTRIES LTD-2018R1-173211

PATIENT
  Age: 28 Year
  Sex: Male

DRUGS (7)
  1. ALBENDAZOLE [Suspect]
     Active Substance: ALBENDAZOLE
     Indication: GIARDIASIS
     Dosage: 400 MG, DAILY
     Route: 065
  2. ORNIDAZOLE [Suspect]
     Active Substance: ORNIDAZOLE
     Indication: GIARDIASIS
     Dosage: 2X500 MG
     Route: 065
  3. PAROMOMYCIN [Suspect]
     Active Substance: PAROMOMYCIN
     Indication: GIARDIASIS
     Dosage: UNK
     Route: 065
  4. COTRIMOXAZOLE [Suspect]
     Active Substance: SULFAMETHOXAZOLE\TRIMETHOPRIM
     Indication: GIARDIASIS
     Route: 065
  5. METRONIDAZOLE. [Suspect]
     Active Substance: METRONIDAZOLE
     Indication: GIARDIASIS
     Route: 065
  6. NITAZOXANIDE [Suspect]
     Active Substance: NITAZOXANIDE
     Indication: GIARDIASIS
     Route: 065
  7. IMMUNOGLOBULIN IV [Suspect]
     Active Substance: HUMAN IMMUNOGLOBULIN G
     Indication: IMMUNODEFICIENCY COMMON VARIABLE
     Route: 042

REACTIONS (2)
  - Off label use [Unknown]
  - Treatment failure [Unknown]
